FAERS Safety Report 6787968-3 (Version None)
Quarter: 2010Q2

REPORT INFORMATION
  Report Type: 
  Country: None (occurrence: None)
  Receive Date: 20100623
  Receipt Date: 20071129
  Transmission Date: 20101027
  Serious: Yes (Other)
  Sender: FDA-Public Use
  Company Number: US-PFIZER INC-2007077583

PATIENT
  Age: 21 Year
  Sex: Female
  Weight: 71.7 kg

DRUGS (1)
  1. DEPO-SUBQ PROVERA 104 [Suspect]
     Indication: CONTRACEPTION
     Route: 058

REACTIONS (1)
  - INJECTION SITE REACTION [None]
